FAERS Safety Report 7395409-0 (Version None)
Quarter: 2011Q2

REPORT INFORMATION
  Report Type: 
  Country: None (occurrence: None)
  Receive Date: 20110405
  Receipt Date: 20110303
  Transmission Date: 20111010
  Serious: Yes (Other)
  Sender: FDA-Public Use
  Company Number: US-BAYER-2010-001443

PATIENT
  Sex: Female
  Weight: 95 kg

DRUGS (2)
  1. NSAID'S [Concomitant]
     Indication: ANTIINFLAMMATORY THERAPY
     Dosage: UNK UNK, PRN
  2. YAZ [Suspect]
     Indication: CONTRACEPTION
     Dosage: UNK
     Dates: start: 20090101, end: 20090101

REACTIONS (3)
  - CHOLELITHIASIS [None]
  - PAIN [None]
  - INJURY [None]
